FAERS Safety Report 19785417 (Version 1)
Quarter: 2021Q3

REPORT INFORMATION
  Report Type: Spontaneous
  Country: US (occurrence: US)
  Receive Date: 20210903
  Receipt Date: 20210903
  Transmission Date: 20211014
  Serious: Yes (Life-Threatening, Hospitalization)
  Sender: FDA-Public Use
  Company Number: US-MYLANLABS-2021M1058784

PATIENT
  Age: 8 Week
  Sex: Male

DRUGS (5)
  1. BACITRACIN. [Concomitant]
     Active Substance: BACITRACIN
     Indication: PRODUCT USED FOR UNKNOWN INDICATION
     Route: 065
  2. CEFAZOLIN [Suspect]
     Active Substance: CEFAZOLIN
     Indication: DRUG THERAPY
  3. ACETAMINOPHEN. [Suspect]
     Active Substance: ACETAMINOPHEN
     Indication: PYREXIA
     Dosage: UNK
     Route: 065
  4. CEFAZOLIN [Suspect]
     Active Substance: CEFAZOLIN
     Indication: BACTERIAL DISEASE CARRIER
     Route: 064
  5. HYDROXYCHLOROQUINE [Suspect]
     Active Substance: HYDROXYCHLOROQUINE
     Indication: SJOGREN^S SYNDROME
     Route: 064

REACTIONS (3)
  - Toxic epidermal necrolysis [Recovering/Resolving]
  - Foetal exposure during pregnancy [Recovered/Resolved]
  - Respiratory distress [Recovering/Resolving]
